FAERS Safety Report 16438233 (Version 1)
Quarter: 2019Q2

REPORT INFORMATION
  Report Type: Spontaneous
  Country: CN (occurrence: CN)
  Receive Date: 20190617
  Receipt Date: 20190617
  Transmission Date: 20190711
  Serious: Yes (Hospitalization)
  Sender: FDA-Public Use
  Company Number: CN-BAXTER-2019BAX011669

PATIENT
  Age: 42 Year
  Sex: Female
  Weight: 63.9 kg

DRUGS (4)
  1. ENDOXAN [Suspect]
     Active Substance: CYCLOPHOSPHAMIDE
     Indication: BREAST CANCER FEMALE
     Dosage: ENDOXAN + SODIUM CHLORIDE
     Route: 041
     Dates: start: 20190520, end: 20190520
  2. 0.9% SODIUM CHLORIDE INJECTION [Suspect]
     Active Substance: SODIUM CHLORIDE
     Dosage: PHARMORUBICIN RD + SODIUM CHLORIDE
     Route: 041
     Dates: start: 20190520, end: 20190520
  3. 0.9% SODIUM CHLORIDE INJECTION [Suspect]
     Active Substance: SODIUM CHLORIDE
     Indication: MEDICATION DILUTION
     Dosage: ENDOXAN + SODIUM CHLORIDE
     Route: 041
     Dates: start: 20190520, end: 20190520
  4. PHARMORUBICIN RD [Suspect]
     Active Substance: EPIRUBICIN
     Indication: BREAST CANCER FEMALE
     Dosage: PHARMORUBICIN RD + SODIUM CHLORIDE
     Route: 041
     Dates: start: 20190520, end: 20190520

REACTIONS (4)
  - Vomiting [Recovered/Resolved]
  - Mental disorder [Recovered/Resolved]
  - Fatigue [Recovered/Resolved]
  - Nausea [Recovered/Resolved]

NARRATIVE: CASE EVENT DATE: 20190520
